FAERS Safety Report 12231989 (Version 1)
Quarter: 2016Q2

REPORT INFORMATION
  Report Type: Spontaneous
  Country: US (occurrence: US)
  Receive Date: 20160401
  Receipt Date: 20160401
  Transmission Date: 20160815
  Serious: No
  Sender: FDA-Public Use
  Company Number: US-WARNER CHILCOTT, LLC-1050139

PATIENT
  Age: 65 Year
  Sex: Female

DRUGS (1)
  1. FEMRING [Suspect]
     Active Substance: ESTRADIOL ACETATE
     Route: 067

REACTIONS (5)
  - Hot flush [Unknown]
  - Alopecia [Unknown]
  - Dyspareunia [Unknown]
  - Onychoclasis [Unknown]
  - Coital bleeding [Unknown]
